FAERS Safety Report 4958542-6 (Version None)
Quarter: 2006Q1

REPORT INFORMATION
  Report Type: 
  Country: None (occurrence: None)
  Receive Date: 20060127
  Receipt Date: 20050812
  Transmission Date: 20060701
  Serious: Yes (Hospitalization)
  Sender: FDA-Public Use
  Company Number: 05-08-1422

PATIENT
  Age: 62 Year
  Sex: Male

DRUGS (2)
  1. CLOZAPINE [Suspect]
     Indication: BIPOLAR DISORDER
     Dosage: 350-450MG QD, ORAL
     Route: 048
     Dates: start: 20050701
  2. CLOZAPINE [Suspect]
     Indication: DEMENTIA
     Dosage: 350-450MG QD, ORAL
     Route: 048
     Dates: start: 20050701

REACTIONS (1)
  - DRUG INEFFECTIVE FOR UNAPPROVED INDICATION [None]
